FAERS Safety Report 13155375 (Version 27)
Quarter: 2018Q2

REPORT INFORMATION
  Report Type: Report from Study
  Country: DE (occurrence: DE)
  Receive Date: 20170126
  Receipt Date: 20180425
  Transmission Date: 20180711
  Serious: Yes (Life-Threatening, Hospitalization, Other)
  Sender: FDA-Public Use
  Company Number: PHHY2017DE010209

PATIENT
  Age: 82 Year
  Sex: Male
  Weight: 68 kg

DRUGS (7)
  1. TIOTROPIUM [Concomitant]
     Active Substance: TIOTROPIUM
     Indication: CHRONIC OBSTRUCTIVE PULMONARY DISEASE
     Dosage: 18 UG, QD (18 ?G MICROGRAM(S) EVERY DAY)
     Route: 055
     Dates: start: 20170228
  2. BISOPROLOL [Concomitant]
     Active Substance: BISOPROLOL
     Indication: CARDIAC FAILURE CONGESTIVE
     Dosage: 2.5 MG, QD (2.5 MILLIGRAM(S) EVERY DAY)
     Route: 048
     Dates: start: 20110809
  3. ENTRESTO [Suspect]
     Active Substance: SACUBITRIL\VALSARTAN
     Indication: CARDIAC FAILURE CHRONIC
     Dosage: 100 MG (49/51 MG), BID
     Route: 048
     Dates: start: 20161214, end: 20170105
  4. CLOPIDOGREL [Concomitant]
     Active Substance: CLOPIDOGREL BISULFATE
     Indication: PRODUCT USED FOR UNKNOWN INDICATION
     Dosage: UNK
     Route: 065
  5. ENTRESTO [Suspect]
     Active Substance: SACUBITRIL\VALSARTAN
     Dosage: 100 MG (49/51 MG), QD
     Route: 048
     Dates: start: 20170228, end: 20170627
  6. ENTRESTO [Suspect]
     Active Substance: SACUBITRIL\VALSARTAN
     Indication: CARDIAC FAILURE
     Dosage: 50 MG (24/26 MG), BID
     Route: 048
     Dates: start: 20160209, end: 20161213
  7. ENTRESTO [Suspect]
     Active Substance: SACUBITRIL\VALSARTAN
     Dosage: 50 MG (24/26 MG), BID
     Route: 048
     Dates: start: 20170628, end: 20170822

REACTIONS (63)
  - Pyrexia [Unknown]
  - Cardiac failure [Recovering/Resolving]
  - Chest pain [Unknown]
  - Pallor [Unknown]
  - Gastrointestinal haemorrhage [Unknown]
  - Haemorrhoids [Unknown]
  - Somatic symptom disorder [Unknown]
  - Diastolic dysfunction [Recovering/Resolving]
  - Pneumonia [Recovered/Resolved]
  - Oedema peripheral [Unknown]
  - Cough [Unknown]
  - Asthenia [Unknown]
  - Haemoglobin decreased [Unknown]
  - Aortic valve incompetence [Not Recovered/Not Resolved]
  - Angiopathy [Unknown]
  - Central obesity [Unknown]
  - Essential tremor [Unknown]
  - Blood pressure increased [Unknown]
  - C-reactive protein increased [Unknown]
  - Bronchospasm [Unknown]
  - Gallbladder oedema [Unknown]
  - Bacterial test positive [Unknown]
  - Hyperproteinaemia [Unknown]
  - Gamma-glutamyltransferase increased [Unknown]
  - Weight decreased [Unknown]
  - Gait disturbance [Unknown]
  - Blood creatinine abnormal [Not Recovered/Not Resolved]
  - Lymphadenopathy mediastinal [Unknown]
  - Pulmonary congestion [Unknown]
  - Glomerular filtration rate decreased [Recovering/Resolving]
  - Ischaemic cardiomyopathy [Not Recovered/Not Resolved]
  - Left ventricular dysfunction [Unknown]
  - Orthopnoea [Recovering/Resolving]
  - General physical health deterioration [Recovering/Resolving]
  - Melaena [Not Recovered/Not Resolved]
  - Chronic kidney disease [Unknown]
  - Troponin increased [Unknown]
  - Blood calcium increased [Unknown]
  - Skin turgor decreased [Unknown]
  - Chronic obstructive pulmonary disease [Unknown]
  - Hypotension [Recovering/Resolving]
  - Wheezing [Unknown]
  - Mitral valve incompetence [Recovering/Resolving]
  - Acute myocardial infarction [Unknown]
  - Tricuspid valve incompetence [Not Recovered/Not Resolved]
  - Granulocyte count increased [Unknown]
  - Sepsis [Unknown]
  - Hyperkalaemia [Unknown]
  - Blood creatinine increased [Unknown]
  - Protein urine [Unknown]
  - Haematocrit decreased [Unknown]
  - Platelet count decreased [Unknown]
  - Blood uric acid increased [Unknown]
  - Ejection fraction decreased [Unknown]
  - Pleural effusion [Unknown]
  - Anxiety [Not Recovered/Not Resolved]
  - Crepitations [Unknown]
  - Lung infiltration [Recovering/Resolving]
  - Dyspnoea [Unknown]
  - Breath odour [Unknown]
  - Lymphocyte count decreased [Unknown]
  - Cataract [Unknown]
  - Inappropriate schedule of drug administration [Unknown]

NARRATIVE: CASE EVENT DATE: 201612
